FAERS Safety Report 17375479 (Version 2)
Quarter: 2020Q1

REPORT INFORMATION
  Report Type: Spontaneous
  Country: CA (occurrence: CA)
  Receive Date: 20200205
  Receipt Date: 20200219
  Transmission Date: 20200409
  Serious: Yes (Death, Other)
  Sender: FDA-Public Use
  Company Number: CA-PFIZER INC-2020047869

PATIENT
  Age: 2 Year
  Sex: Female
  Weight: 15 kg

DRUGS (2)
  1. TOPOTECAN HYDROCHLORIDE. [Suspect]
     Active Substance: TOPOTECAN HYDROCHLORIDE
     Indication: NEUROBLASTOMA RECURRENT
     Dosage: 1.2 MG/M2, CYCLIC (5 DAYS EVERY 21 DAYS)
     Route: 042
     Dates: start: 20190817, end: 20191209
  2. CYCLOPHOSPHAMIDE. [Suspect]
     Active Substance: CYCLOPHOSPHAMIDE
     Indication: NEUROBLASTOMA RECURRENT
     Dosage: 400 MG/M2, CYCLIC (5 DAYS EVERY 21 DAYS)
     Route: 042
     Dates: start: 20190817, end: 20191209

REACTIONS (5)
  - Neuroblastoma recurrent [Fatal]
  - Neoplasm progression [Unknown]
  - Bladder obstruction [Unknown]
  - Haematuria [Unknown]
  - Hydronephrosis [Unknown]

NARRATIVE: CASE EVENT DATE: 202001
